FAERS Safety Report 13587962 (Version 5)
Quarter: 2018Q3

REPORT INFORMATION
  Report Type: Spontaneous
  Country: US (occurrence: US)
  Receive Date: 20170527
  Receipt Date: 20180925
  Transmission Date: 20181010
  Serious: Yes (Hospitalization, Other)
  Sender: FDA-Public Use
  Company Number: US-DSJP-DSU-2017-116017

PATIENT

DRUGS (1)
  1. BENICAR HCT [Suspect]
     Active Substance: HYDROCHLOROTHIAZIDE\OLMESARTAN MEDOXOMIL
     Indication: HYPERTENSION
     Dosage: 40/12.5MG DAILY
     Dates: start: 200506

REACTIONS (4)
  - Sprue-like enteropathy [Unknown]
  - Colectomy [Unknown]
  - Haemorrhoids [Unknown]
  - Diverticulitis [Unknown]

NARRATIVE: CASE EVENT DATE: 20080205
